FAERS Safety Report 10035164 (Version 1)
Quarter: 2014Q1

REPORT INFORMATION
  Report Type: Spontaneous
  Country: US (occurrence: US)
  Receive Date: 20140325
  Receipt Date: 20140325
  Transmission Date: 20141002
  Serious: No
  Sender: FDA-Public Use
  Company Number: US-B.I. PHARMACEUTICALS,INC./RIDGEFIELD-2014-BI-11917BP

PATIENT
  Age: 77 Year
  Sex: Female

DRUGS (4)
  1. CATAPRES [Suspect]
     Indication: HOT FLUSH
     Route: 065
  2. CATAPRES [Suspect]
     Indication: NIGHT SWEATS
  3. BLACK COHOSH EXTRACT [Concomitant]
     Indication: HOT FLUSH
     Dosage: 3 ANZ
     Route: 065
  4. SOY ISOFLAVONES [Concomitant]
     Indication: HOT FLUSH
     Dosage: 160 MG
     Route: 065

REACTIONS (4)
  - Drug ineffective [Unknown]
  - Crying [Unknown]
  - Emotional disorder [Unknown]
  - Dizziness [Unknown]
